FAERS Safety Report 25714157 (Version 1)
Quarter: 2025Q3

REPORT INFORMATION
  Report Type: Spontaneous
  Country: None (occurrence: US)
  Receive Date: 20250822
  Receipt Date: 20250822
  Transmission Date: 20251021
  Serious: No
  Sender: GRIFOLS
  Company Number: US-IGSA-BIG0031812

PATIENT
  Age: 53 Year
  Sex: Female

DRUGS (3)
  1. XEMBIFY [Suspect]
     Active Substance: HUMAN IMMUNOGLOBULIN G
     Indication: Blood immunoglobulin G decreased
     Dosage: 7 GRAM, Q.WK.
     Route: 058
     Dates: start: 20241120
  2. VORICONAZOLE [Concomitant]
     Active Substance: VORICONAZOLE
  3. TYLENOL [Concomitant]
     Active Substance: ACETAMINOPHEN

REACTIONS (9)
  - Yellow skin [Unknown]
  - Fatigue [Unknown]
  - Decreased appetite [Unknown]
  - Dysuria [Unknown]
  - Abdominal discomfort [Unknown]
  - Insomnia [Unknown]
  - Constipation [Unknown]
  - Headache [Unknown]
  - Hypotension [Unknown]

NARRATIVE: CASE EVENT DATE: 20241122
